FAERS Safety Report 19955426 (Version 1)
Quarter: 2021Q4

REPORT INFORMATION
  Report Type: Report from Study
  Country: None (occurrence: US)
  Receive Date: 20211013
  Receipt Date: 20211013
  Transmission Date: 20220304
  Serious: Yes (Other)
  Sender: FDA-Public Use
  Company Number: US-ABBVIE-21K-163-4113610-00

PATIENT
  Age: 44 Year
  Sex: Female

DRUGS (1)
  1. SKYRIZI [Suspect]
     Active Substance: RISANKIZUMAB-RZAA
     Indication: Psoriasis
     Route: 058
     Dates: start: 20210409

REACTIONS (5)
  - Intestinal perforation [Unknown]
  - Abdominal discomfort [Not Recovered/Not Resolved]
  - Diverticulum [Not Recovered/Not Resolved]
  - Gastrointestinal motility disorder [Unknown]
  - Pain [Unknown]

NARRATIVE: CASE EVENT DATE: 20210101
